FAERS Safety Report 7237732-6 (Version None)
Quarter: 2011Q1

REPORT INFORMATION
  Report Type: 
  Country: None (occurrence: None)
  Receive Date: 20110121
  Receipt Date: 20110112
  Transmission Date: 20110831
  Serious: Yes (Hospitalization)
  Sender: FDA-Public Use
  Company Number: DE-JNJFOC-20091202947

PATIENT
  Age: 76 Year
  Sex: Male
  Weight: 87 kg

DRUGS (9)
  1. PSORCUTAN BETA [Concomitant]
     Indication: PSORIASIS
  2. REMICADE [Suspect]
     Indication: PSORIASIS
     Route: 042
  3. METRONIDAZOLE [Interacting]
     Indication: ILL-DEFINED DISORDER
  4. TILIDIN [Concomitant]
     Indication: BACK PAIN
  5. REMICADE [Suspect]
     Route: 042
  6. REMICADE [Suspect]
     Route: 042
  7. FENTANYL [Interacting]
     Indication: ILL-DEFINED DISORDER
  8. REMICADE [Suspect]
     Route: 042
  9. ATARAX [Concomitant]
     Indication: PSORIASIS

REACTIONS (7)
  - CLOSTRIDIUM DIFFICILE COLITIS [None]
  - CHEST PAIN [None]
  - DRUG INTERACTION [None]
  - DEPRESSION [None]
  - MENTAL DISORDER [None]
  - MYOCARDIAL INFARCTION [None]
  - OVERDOSE [None]
